FAERS Safety Report 4555056-2 (Version None)
Quarter: 2004Q4

REPORT INFORMATION
  Report Type: 
  Country: None (occurrence: None)
  Receive Date: 20041217
  Receipt Date: 20040803
  Transmission Date: 20050328
  Serious: No
  Sender: FDA-Public Use
  Company Number: 2004-BP-05268BP

PATIENT
  Age: 83 Year
  Sex: Female

DRUGS (11)
  1. SPIRIVA HANDIHANDLER (TIOTROPIUM BROMIDE) [Suspect]
     Indication: CHRONIC OBSTRUCTIVE AIRWAYS DISEASE
     Dosage: 18 MCG (18 MCG), IH
     Route: 055
     Dates: start: 20040615
  2. ASACOL [Concomitant]
  3. LASIX [Concomitant]
  4. PRILOSEC [Concomitant]
  5. PAXIL [Concomitant]
  6. PLAVIX [Concomitant]
  7. ALBUTEROL [Concomitant]
  8. ADVAIR (SERETIDE MITE) [Concomitant]
  9. MEDROL [Concomitant]
  10. TORSEMIDE (TORASEMIDE) [Concomitant]
  11. KLOR-CON [Concomitant]

REACTIONS (1)
  - TREMOR [None]
